FAERS Safety Report 10029257 (Version 1)
Quarter: 2014Q1

REPORT INFORMATION
  Report Type: Report from Study
  Country: US (occurrence: US)
  Receive Date: 20140321
  Receipt Date: 20140321
  Transmission Date: 20141002
  Serious: Yes (Other)
  Sender: FDA-Public Use
  Company Number: PHEH2014US005457

PATIENT
  Age: 53 Year
  Sex: Female

DRUGS (1)
  1. TOBI [Suspect]
     Dosage: 1 DF, QD
     Route: 055
     Dates: start: 20140201

REACTIONS (1)
  - Infection [Unknown]
